FAERS Safety Report 13413804 (Version 1)
Quarter: 2017Q1

REPORT INFORMATION
  Report Type: Spontaneous
  Country: US (occurrence: US)
  Receive Date: 20170108
  Receipt Date: 20170108
  Transmission Date: 20170429
  Serious: Yes (Hospitalization)
  Sender: FDA-Public Use
  Company Number: None

PATIENT
  Age: 61 Year
  Sex: Female
  Weight: 72 kg

DRUGS (3)
  1. IT COSMETIC FOUNDATION/SPF50/M [Suspect]
     Active Substance: TITANIUM DIOXIDE\ZINC OXIDE
     Indication: SKIN COSMETIC PROCEDURE
     Dosage: QUANTITY:1 OUNCE(S);?
     Route: 061
  2. VITAMIN D3 [Concomitant]
     Active Substance: CHOLECALCIFEROL
  3. VITAMIN C [Concomitant]
     Active Substance: ASCORBIC ACID

REACTIONS (2)
  - Skin ulcer [None]
  - Product difficult to remove [None]

NARRATIVE: CASE EVENT DATE: 20160711
